FAERS Safety Report 16031129 (Version 4)
Quarter: 2020Q2

REPORT INFORMATION
  Report Type: Report from Study
  Country: AR (occurrence: AR)
  Receive Date: 20190304
  Receipt Date: 20200625
  Transmission Date: 20200713
  Serious: Yes (Other)
  Sender: FDA-Public Use
  Company Number: AR-ACTELION-A-CH2019-186939

PATIENT
  Age: 6 Year
  Sex: Male
  Weight: 14 kg

DRUGS (1)
  1. MIGLUSTAT. [Suspect]
     Active Substance: MIGLUSTAT
     Indication: NIEMANN-PICK DISEASE
     Dosage: 300 MG, QD
     Route: 048
     Dates: start: 20170801

REACTIONS (12)
  - Panic attack [Recovering/Resolving]
  - Muscle rigidity [Recovering/Resolving]
  - Apnoea [Unknown]
  - Adenoidal hypertrophy [Unknown]
  - Epistaxis [Recovering/Resolving]
  - Cough [Recovering/Resolving]
  - Screaming [Recovering/Resolving]
  - Mouth haemorrhage [Recovering/Resolving]
  - Eye movement disorder [Recovering/Resolving]
  - Insomnia [Unknown]
  - Malaise [Unknown]
  - Seizure [Unknown]

NARRATIVE: CASE EVENT DATE: 20200227
